FAERS Safety Report 20221128 (Version 1)
Quarter: 2021Q4

REPORT INFORMATION
  Report Type: Spontaneous
  Country: GB (occurrence: GB)
  Receive Date: 20211223
  Receipt Date: 20211223
  Transmission Date: 20220303
  Serious: Yes (Other)
  Sender: FDA-Public Use
  Company Number: GB-MHRA-EYC 00268761

PATIENT
  Age: 29 Year
  Sex: Male
  Weight: 48 kg

DRUGS (2)
  1. CITALOPRAM [Suspect]
     Active Substance: CITALOPRAM HYDROBROMIDE
     Indication: Depression suicidal
     Dosage: 20 MG, UNK
     Route: 048
     Dates: start: 20210215, end: 20210427
  2. SERTRALINE [Concomitant]
     Active Substance: SERTRALINE HYDROCHLORIDE
     Indication: Ill-defined disorder
     Dosage: UNK
     Route: 065

REACTIONS (2)
  - Mania [Not Recovered/Not Resolved]
  - Substance abuse [Recovered/Resolved with Sequelae]

NARRATIVE: CASE EVENT DATE: 20210311
